FAERS Safety Report 10472421 (Version 2)
Quarter: 2014Q4

REPORT INFORMATION
  Report Type: Spontaneous
  Country: US (occurrence: None)
  Receive Date: 20140922
  Receipt Date: 20141014
  Transmission Date: 20150528
  Serious: Yes (Other)
  Sender: FDA-Public Use
  Company Number: 2014IHE00338

PATIENT
  Age: 58 Year
  Sex: Female

DRUGS (10)
  1. BIOTIN [Concomitant]
     Active Substance: BIOTIN
  2. GINSENG [Concomitant]
  3. AZO URINARY PAIN RELIEF [Suspect]
     Active Substance: PHENAZOPYRIDINE HYDROCHLORIDE
     Indication: URINARY TRACT INFECTION
     Dosage: 2 DOSAGE UNITS
     Route: 048
     Dates: start: 2011, end: 2011
  4. MILK THISTLE [Concomitant]
     Active Substance: MILK THISTLE
  5. ASTRAGALUS [Concomitant]
  6. AZO CRANBERRY [Concomitant]
  7. HOLY BASIL [Concomitant]
  8. OLIVE LEAF EXTRACT [Concomitant]
  9. VITAMIN D-3 [Concomitant]
  10. I-CAPS [Concomitant]

REACTIONS (10)
  - Dyspnoea [None]
  - Cough [None]
  - Shock [None]
  - Tachycardia [None]
  - Hypersensitivity [None]
  - Odynophagia [None]
  - Pleurisy [None]
  - Throat tightness [None]
  - Tremor [None]
  - Chest pain [None]

NARRATIVE: CASE EVENT DATE: 2011
